FAERS Safety Report 8333976-0 (Version None)
Quarter: 2012Q2

REPORT INFORMATION
  Report Type: 
  Country: None (occurrence: None)
  Receive Date: 20120503
  Receipt Date: 20120427
  Transmission Date: 20120825
  Serious: Yes (Hospitalization, Other)
  Sender: FDA-Public Use
  Company Number: DE-ROCHE-1045666

PATIENT
  Sex: Male
  Weight: 86.3 kg

DRUGS (4)
  1. FLUOROURACIL [Suspect]
     Indication: COLON CANCER
     Dates: start: 20101020, end: 20101207
  2. OXALIPLATIN [Suspect]
     Indication: COLON CANCER
     Dates: start: 20101020, end: 20101207
  3. FOLINIC ACID [Suspect]
     Indication: COLON CANCER
     Dates: start: 20101020, end: 20101207
  4. XELODA [Suspect]
     Indication: COLON CANCER

REACTIONS (3)
  - PLEURAL EFFUSION [None]
  - GENERAL PHYSICAL HEALTH DETERIORATION [None]
  - ASCITES [None]
